FAERS Safety Report 8580957-8 (Version None)
Quarter: 2012Q3

REPORT INFORMATION
  Report Type: 
  Country: None (occurrence: None)
  Receive Date: 20120809
  Receipt Date: 20120806
  Transmission Date: 20120928
  Serious: Yes (Other)
  Sender: FDA-Public Use
  Company Number: US-PFIZER INC-2012191522

PATIENT
  Age: 69 Year
  Sex: Female
  Weight: 77.098 kg

DRUGS (4)
  1. LYRICA [Suspect]
     Dosage: UNK
     Route: 048
  2. LYRICA [Suspect]
     Indication: NEUROMYOPATHY
     Dosage: 100 MG, 3X/DAY
     Route: 048
  3. NEXIUM [Concomitant]
     Dosage: UNK
  4. HYDROCODONE BITARTRATE + ACETAMINOPHEN [Concomitant]
     Indication: UPPER LIMB FRACTURE
     Dosage: UNK

REACTIONS (3)
  - EXPIRED DRUG ADMINISTERED [None]
  - BLOOD GLUCOSE INCREASED [None]
  - MEMORY IMPAIRMENT [None]
